FAERS Safety Report 10185346 (Version 1)
Quarter: 2014Q2

REPORT INFORMATION
  Report Type: Spontaneous
  Country: US (occurrence: ES)
  Receive Date: 20140521
  Receipt Date: 20140521
  Transmission Date: 20141212
  Serious: Yes (Hospitalization)
  Sender: FDA-Public Use
  Company Number: ES-FRI-1000067499

PATIENT
  Age: 65 Year
  Sex: Male
  Weight: 86 kg

DRUGS (9)
  1. ROFLUMILAST [Suspect]
     Indication: CHRONIC OBSTRUCTIVE PULMONARY DISEASE
     Dosage: 500 MCG
     Route: 048
     Dates: start: 2012
  2. SERETIDE [Concomitant]
     Dates: start: 2009
  3. SEEBRI [Concomitant]
     Dates: start: 2009
  4. BUDESONIDE [Concomitant]
     Dates: start: 2009
  5. VENTOLIN [Concomitant]
     Dates: start: 2009
  6. DACORTIN [Concomitant]
  7. ADIRO [Concomitant]
     Dates: start: 2011
  8. AMLODIPINE [Concomitant]
     Dates: start: 2011
  9. ALLOPURINOL [Concomitant]
     Dates: start: 2008

REACTIONS (3)
  - Oxygen consumption decreased [Unknown]
  - Sputum increased [Unknown]
  - Fatigue [Unknown]
